FAERS Safety Report 12882364 (Version 1)
Quarter: 2016Q4

REPORT INFORMATION
  Report Type: Report from Study
  Country: US (occurrence: US)
  Receive Date: 20161025
  Receipt Date: 20161025
  Transmission Date: 20170207
  Serious: Yes (Other)
  Sender: FDA-Public Use
  Company Number: US-BAYER-2016-162088

PATIENT
  Age: 59 Year
  Sex: Female
  Weight: 69.39 kg

DRUGS (9)
  1. ASPIRIN. [Concomitant]
     Active Substance: ASPIRIN
  2. ZOFRAN [Concomitant]
     Active Substance: ONDANSETRON HYDROCHLORIDE
  3. TYLENOL WITH CODEINE [Concomitant]
     Active Substance: ACETAMINOPHEN\CODEINE PHOSPHATE
  4. STIVARGA [Suspect]
     Active Substance: REGORAFENIB
     Indication: COLON CANCER
     Dosage: 120 MG, QD FOR 21 DAYS
     Route: 048
     Dates: start: 20160809
  5. METOPROLOL. [Concomitant]
     Active Substance: METOPROLOL
  6. COMPAZINE [Concomitant]
     Active Substance: PROCHLORPERAZINE MALEATE
  7. NORVASC [Concomitant]
     Active Substance: AMLODIPINE BESYLATE
  8. LOVASTATIN. [Concomitant]
     Active Substance: LOVASTATIN
  9. METFORMIN [Concomitant]
     Active Substance: METFORMIN HYDROCHLORIDE

REACTIONS (6)
  - Back pain [None]
  - Hemianaesthesia [Unknown]
  - Abasia [Unknown]
  - Pyrexia [None]
  - Headache [None]
  - Back pain [Unknown]

NARRATIVE: CASE EVENT DATE: 20160812
